FAERS Safety Report 9393400 (Version 2)
Quarter: 2013Q3

REPORT INFORMATION
  Report Type: Report from Study
  Country: DE (occurrence: DE)
  Receive Date: 20130710
  Receipt Date: 20130920
  Transmission Date: 20140515
  Serious: Yes (Death, Hospitalization, Other)
  Sender: FDA-Public Use
  Company Number: PHHY2013DE031276

PATIENT
  Sex: Female
  Weight: 54 kg

DRUGS (2)
  1. AFINITOR [Suspect]
     Indication: BREAST CANCER METASTATIC
     Dosage: 10 MG, DAILY
     Route: 048
     Dates: start: 20121221, end: 20130406
  2. EXEMESTANE [Suspect]
     Indication: BREAST CANCER METASTATIC
     Dosage: 25 MG, DAILY
     Route: 048
     Dates: start: 20121221, end: 20130406

REACTIONS (8)
  - Respiratory failure [Fatal]
  - Coma [Fatal]
  - Breast swelling [Not Recovered/Not Resolved]
  - Pleural effusion [Recovered/Resolved]
  - Dyspnoea [Recovering/Resolving]
  - Thrombosis [Not Recovered/Not Resolved]
  - Lip disorder [Recovered/Resolved]
  - Tongue eruption [Recovered/Resolved]
